FAERS Safety Report 15859946 (Version 1)
Quarter: 2019Q1

REPORT INFORMATION
  Report Type: Spontaneous
  Country: FR (occurrence: FR)
  Receive Date: 20190123
  Receipt Date: 20190123
  Transmission Date: 20190417
  Serious: Yes (Other)
  Sender: FDA-Public Use
  Company Number: FR-009507513-1901FRA006271

PATIENT
  Age: 67 Year
  Sex: Male

DRUGS (5)
  1. BACTRIM [Suspect]
     Active Substance: SULFAMETHOXAZOLE\TRIMETHOPRIM
     Indication: PROPHYLAXIS
     Dosage: 2 DOSAGE FORM, QD
     Route: 048
     Dates: start: 20181123, end: 20181213
  2. CEFTAZIDIME. [Concomitant]
     Active Substance: CEFTAZIDIME
  3. ACYCLOVIR. [Suspect]
     Active Substance: ACYCLOVIR
     Indication: ANTIVIRAL PROPHYLAXIS
     Dosage: 1000 MILLIGRAM, QD
     Route: 048
     Dates: start: 20181123, end: 20181213
  4. FASTURTEC [Concomitant]
     Active Substance: RASBURICASE
  5. NOXAFIL [Suspect]
     Active Substance: POSACONAZOLE
     Indication: ANTIFUNGAL PROPHYLAXIS
     Dosage: 600 MILLIGRAM, QD
     Route: 048
     Dates: start: 20181123, end: 20181213

REACTIONS (2)
  - Hyperbilirubinaemia [Recovering/Resolving]
  - Ocular icterus [Recovering/Resolving]

NARRATIVE: CASE EVENT DATE: 20181129
